FAERS Safety Report 8153049-X (Version None)
Quarter: 2012Q1

REPORT INFORMATION
  Report Type: 
  Country: None (occurrence: None)
  Receive Date: 20120221
  Receipt Date: 20120214
  Transmission Date: 20120608
  Serious: Yes (Other)
  Sender: FDA-Public Use
  Company Number: DE-PFIZER INC-2012036436

PATIENT
  Age: 58 Year
  Sex: Male
  Weight: 100 kg

DRUGS (7)
  1. TESTOSTERONE UNDECANOATE [Concomitant]
     Indication: HYPOGONADISM
  2. TESTOSTERONE UNDECANOATE [Concomitant]
     Indication: LUTEINISING HORMONE DEFICIENCY
  3. SIMVASTATIN [Concomitant]
     Dosage: UNK
     Route: 048
     Dates: start: 20110501
  4. TESTOSTERONE UNDECANOATE [Concomitant]
     Indication: FOLLICLE-STIMULATING HORMONE DEFICIENCY
  5. SOMATROPIN [Suspect]
     Indication: GROWTH HORMONE DEFICIENCY
     Dosage: 0.6 MG, DAILY
     Dates: start: 20050915
  6. ACE-HEMMER ^RATIOPHARM^ [Concomitant]
     Indication: HYPERTENSION
     Dosage: UNK
     Route: 048
     Dates: start: 20081201
  7. HYDROCORTISONE [Concomitant]
     Indication: BLOOD CORTICOTROPHIN DECREASED
     Dosage: UNK
     Dates: start: 20070109

REACTIONS (1)
  - PITUITARY TUMOUR BENIGN [None]
